FAERS Safety Report 25543841 (Version 1)
Quarter: 2025Q3

REPORT INFORMATION
  Report Type: Spontaneous
  Country: CN (occurrence: CN)
  Receive Date: 20250711
  Receipt Date: 20250711
  Transmission Date: 20251020
  Serious: Yes (Death)
  Sender: NOVARTIS
  Company Number: CN-002147023-NVSC2024CN005111

PATIENT
  Age: 70 Year
  Sex: Male

DRUGS (2)
  1. DABRAFENIB [Suspect]
     Active Substance: DABRAFENIB
     Indication: Lung neoplasm malignant
     Dosage: 150 MG, BID
     Route: 048
     Dates: start: 20211019, end: 20221010
  2. TRAMETINIB [Suspect]
     Active Substance: TRAMETINIB
     Indication: Lung neoplasm malignant
     Dosage: 2 MG, QD
     Route: 048
     Dates: start: 20211019, end: 20221010

REACTIONS (2)
  - Lung neoplasm malignant [Fatal]
  - Malignant neoplasm progression [Fatal]

NARRATIVE: CASE EVENT DATE: 20221010
